FAERS Safety Report 23661090 (Version 2)
Quarter: 2024Q2

REPORT INFORMATION
  Report Type: Report from Study
  Country: CN (occurrence: CN)
  Receive Date: 20240322
  Receipt Date: 20240404
  Transmission Date: 20240716
  Serious: Yes (Life-Threatening, Hospitalization, Other)
  Sender: FDA-Public Use
  Company Number: CN-QILU PHARMACEUTICAL (HAINAN) CO.  LTD.-QLH-000033-2024

PATIENT
  Age: 20 Year
  Sex: Female
  Weight: 53 kg

DRUGS (3)
  1. IRINOTECAN HYDROCHLORIDE [Suspect]
     Active Substance: IRINOTECAN HYDROCHLORIDE
     Indication: Epithelioid sarcoma
     Dosage: 90 MINUTES INFUSION AT A DOSE OF 50 MG/M2/D FOR 5 DAYS EVERY 3 WEEKS,
     Route: 042
     Dates: start: 20211209, end: 20220814
  2. VINCRISTINE [Suspect]
     Active Substance: VINCRISTINE
     Indication: Epithelioid sarcoma
     Dosage: 1.4 MG/M2 (MAXIMUM 2 MG) ON DAYS 1 AND 8
     Route: 065
  3. CATEQUENTINIB [Concomitant]
     Active Substance: CATEQUENTINIB
     Indication: Soft tissue sarcoma
     Dosage: ONCE DAILY ON DAYS 1-14 WITHIN A 21-DAY CYCLE
     Route: 048
     Dates: start: 20210804

REACTIONS (3)
  - Soft tissue necrosis [Recovered/Resolved]
  - Tumour rupture [Recovered/Resolved]
  - Off label use [Unknown]

NARRATIVE: CASE EVENT DATE: 20211209
